FAERS Safety Report 22090165 (Version 1)
Quarter: 2023Q1

REPORT INFORMATION
  Report Type: Spontaneous
  Country: JP (occurrence: JP)
  Receive Date: 20230313
  Receipt Date: 20230313
  Transmission Date: 20230417
  Serious: Yes (Other)
  Sender: FDA-Public Use
  Company Number: JP-TAKEDA-2023TUS025705

PATIENT
  Age: 24 Year
  Sex: Male

DRUGS (3)
  1. INTUNIV [Suspect]
     Active Substance: GUANFACINE HYDROCHLORIDE
     Indication: Attention deficit hyperactivity disorder
     Dosage: UNK
     Route: 065
  2. INTUNIV [Suspect]
     Active Substance: GUANFACINE HYDROCHLORIDE
     Dosage: 5 MILLIGRAM, QD
     Route: 065
  3. RISPERIDONE [Concomitant]
     Active Substance: RISPERIDONE
     Dosage: UNK
     Route: 048

REACTIONS (5)
  - Suicidal ideation [Unknown]
  - Abnormal behaviour [Unknown]
  - Restlessness [Unknown]
  - Aggression [Unknown]
  - Insomnia [Unknown]
